FAERS Safety Report 13913046 (Version 2)
Quarter: 2017Q3

REPORT INFORMATION
  Report Type: Report from Study
  Country: SG (occurrence: SG)
  Receive Date: 20170828
  Receipt Date: 20170907
  Transmission Date: 20171127
  Serious: Yes (Life-Threatening, Hospitalization)
  Sender: FDA-Public Use
  Company Number: SG-EXELIXIS-XL18417010270

PATIENT
  Age: 53 Year
  Sex: Male
  Weight: 56.1 kg

DRUGS (8)
  1. ETORICOXIB [Concomitant]
     Active Substance: ETORICOXIB
  2. TELBIVUDINE [Concomitant]
     Active Substance: TELBIVUDINE
  3. TRAMADOL. [Concomitant]
     Active Substance: TRAMADOL
  4. XL184 [Suspect]
     Active Substance: CABOZANTINIB
     Indication: HEPATOCELLULAR CARCINOMA
     Dosage: 60 MG, QD
     Route: 048
     Dates: start: 20170206, end: 2017
  5. FUROSEMIDE. [Concomitant]
     Active Substance: FUROSEMIDE
  6. XL184 [Suspect]
     Active Substance: CABOZANTINIB
     Dosage: 20 MG, QD
     Route: 048
     Dates: start: 2017, end: 20170722
  7. CARBIMAZOLE [Concomitant]
     Active Substance: CARBIMAZOLE
  8. SPIRONOLACTONE. [Concomitant]
     Active Substance: SPIRONOLACTONE

REACTIONS (3)
  - Hepatomegaly [Recovered/Resolved]
  - White blood cell count increased [Not Recovered/Not Resolved]
  - Oesophageal varices haemorrhage [Recovered/Resolved]

NARRATIVE: CASE EVENT DATE: 20170818
